FAERS Safety Report 6068623-4 (Version None)
Quarter: 2009Q1

REPORT INFORMATION
  Report Type: 
  Country: None (occurrence: None)
  Receive Date: 20090202
  Receipt Date: 20090121
  Transmission Date: 20090719
  Serious: Yes (Death, Hospitalization)
  Sender: FDA-Public Use
  Company Number: WAES 0901ESP00035

PATIENT
  Age: 63 Year
  Sex: Female

DRUGS (10)
  1. ZETIA [Suspect]
     Indication: HYPERLIPIDAEMIA
     Dosage: 10 MG/Q12H, PO
     Route: 048
     Dates: start: 20070901
  2. ATORVASTATIN CALCIUM [Suspect]
     Indication: HYPERLIPIDAEMIA
     Dosage: 80 MG/DAILY
     Dates: start: 20070901
  3. GEMFIBROZIL [Suspect]
     Indication: HYPERLIPIDAEMIA
     Dosage: 900 MG/DAILY
     Dates: start: 20070901
  4. AMLODIPINE [Concomitant]
  5. CLOPIDOGREL BISULFATE [Concomitant]
  6. FUROSEMIDE [Concomitant]
  7. INSULIN [Concomitant]
  8. INSULIN ASPART [Concomitant]
  9. METFORMIN HCL [Concomitant]
  10. VALSARTAN [Concomitant]

REACTIONS (5)
  - DIABETES MELLITUS INADEQUATE CONTROL [None]
  - HYPOGLYCAEMIA [None]
  - OVERDOSE [None]
  - PNEUMONIA [None]
  - RESPIRATORY ACIDOSIS [None]
